FAERS Safety Report 8048732-0 (Version None)
Quarter: 2012Q1

REPORT INFORMATION
  Report Type: 
  Country: None (occurrence: None)
  Receive Date: 20120117
  Receipt Date: 20120109
  Transmission Date: 20120608
  Serious: Yes (Hospitalization)
  Sender: FDA-Public Use
  Company Number: US-JNJFOC-20120102754

PATIENT
  Sex: Female
  Weight: 28.4 kg

DRUGS (2)
  1. METRONIDAZOLE [Concomitant]
  2. INFLIXIMAB, RECOMBINANT [Suspect]
     Indication: INFLAMMATORY BOWEL DISEASE
     Dosage: MOST RECENT INFUSION WAS 11-SEP-2009
     Route: 042
     Dates: start: 20090731

REACTIONS (5)
  - DIARRHOEA [None]
  - NAUSEA [None]
  - HYPONATRAEMIA [None]
  - DEHYDRATION [None]
  - VOMITING [None]
